APPROVED DRUG PRODUCT: CARBIDOPA AND LEVODOPA
Active Ingredient: CARBIDOPA; LEVODOPA
Strength: 10MG;100MG
Dosage Form/Route: TABLET;ORAL
Application: A216505 | Product #001 | TE Code: AB
Applicant: RUBICON RESEARCH LTD
Approved: Sep 21, 2022 | RLD: No | RS: No | Type: RX